FAERS Safety Report 4436955-9 (Version None)
Quarter: 2004Q3

REPORT INFORMATION
  Report Type: 
  Country: None (occurrence: None)
  Receive Date: 20040830
  Receipt Date: 20030805
  Transmission Date: 20050211
  Serious: No
  Sender: FDA-Public Use
  Company Number: US-GLAXOSMITHKLINE-A0420808A

PATIENT
  Sex: Female

DRUGS (4)
  1. BECONASE [Suspect]
     Indication: SINUSITIS
     Route: 045
  2. PAIN MEDICATION [Concomitant]
  3. SUDAFED S.A. [Concomitant]
  4. ALBUTEROL [Concomitant]
     Route: 055

REACTIONS (2)
  - INSOMNIA [None]
  - LOWER RESPIRATORY TRACT INFECTION [None]
